FAERS Safety Report 9850501 (Version 3)
Quarter: 2014Q1

REPORT INFORMATION
  Report Type: Spontaneous
  Country: GB (occurrence: GB)
  Receive Date: 20140128
  Receipt Date: 20140311
  Transmission Date: 20141002
  Serious: Yes (Other)
  Sender: FDA-Public Use
  Company Number: GB-BAUSCH-BL-2014-000386

PATIENT
  Sex: Female

DRUGS (18)
  1. PREDNISOLONE [Suspect]
     Indication: ANGIOEDEMA
     Dosage: 25-40 MG
     Route: 065
  2. PREDNISOLONE [Suspect]
     Indication: URTICARIA CHRONIC
  3. CETIRIZINE [Suspect]
     Indication: ANGIOEDEMA
     Dosage: UNKNOWN
     Route: 065
  4. CETIRIZINE [Suspect]
     Indication: URTICARIA CHRONIC
  5. CICLOSPORIN [Suspect]
     Indication: ANGIOEDEMA
     Route: 065
  6. CICLOSPORIN [Suspect]
     Indication: URTICARIA CHRONIC
  7. DAPSONE [Suspect]
     Indication: ANGIOEDEMA
     Route: 065
  8. DAPSONE [Suspect]
     Indication: URTICARIA CHRONIC
  9. FEXOFENADINE HYDROCHLORIDE [Suspect]
     Indication: ANGIOEDEMA
     Dosage: UNKNOWN
     Route: 065
  10. FEXOFENADINE HYDROCHLORIDE [Suspect]
     Indication: URTICARIA CHRONIC
  11. HYDROXYCHLOROQUINE SULFATE [Suspect]
     Indication: ANGIOEDEMA
     Route: 065
  12. HYDROXYCHLOROQUINE SULFATE [Suspect]
     Indication: URTICARIA CHRONIC
     Route: 065
  13. HYDROXYZINE [Suspect]
     Indication: ANGIOEDEMA
     Dosage: UNKNOWN
     Route: 065
  14. HYDROXYZINE [Suspect]
     Indication: URTICARIA CHRONIC
  15. LORATADINE [Suspect]
     Indication: ANGIOEDEMA
     Dosage: UNKNOWN
     Route: 048
  16. LORATADINE [Suspect]
     Indication: URTICARIA CHRONIC
  17. METHOTREXATE [Suspect]
     Indication: ANGIOEDEMA
     Dosage: UNKNOWN
     Route: 048
  18. METHOTREXATE [Suspect]
     Indication: URTICARIA CHRONIC

REACTIONS (6)
  - Angioedema [Not Recovered/Not Resolved]
  - Urticaria [Not Recovered/Not Resolved]
  - Asthma [Not Recovered/Not Resolved]
  - Blood pressure increased [Unknown]
  - Drug effect incomplete [Not Recovered/Not Resolved]
  - Drug ineffective [Unknown]
